FAERS Safety Report 7627741-7 (Version None)
Quarter: 2011Q3

REPORT INFORMATION
  Report Type: 
  Country: None (occurrence: None)
  Receive Date: 20110721
  Receipt Date: 20110712
  Transmission Date: 20111222
  Serious: Yes (Other)
  Sender: FDA-Public Use
  Company Number: DE-US-EMD SERONO, INC.-7069252

PATIENT
  Sex: Female

DRUGS (3)
  1. REBIF [Suspect]
     Indication: MULTIPLE SCLEROSIS
     Route: 058
     Dates: start: 20090512
  2. APYDAN [Concomitant]
     Indication: EPILEPSY
  3. OPIPRAMOL [Concomitant]
     Indication: DEPRESSION

REACTIONS (2)
  - INJECTION SITE SWELLING [None]
  - EPILEPSY [None]
